FAERS Safety Report 10930961 (Version 1)
Quarter: 2015Q1

REPORT INFORMATION
  Report Type: Spontaneous
  Country: US (occurrence: US)
  Receive Date: 20150319
  Receipt Date: 20150319
  Transmission Date: 20150721
  Serious: No
  Sender: FDA-Public Use
  Company Number: US-SA-2014SA106960

PATIENT
  Age: 61 Year
  Sex: Female

DRUGS (5)
  1. LEUKINE [Suspect]
     Active Substance: SARGRAMOSTIM
     Indication: COLON CANCER
     Route: 065
     Dates: start: 20140724
  2. 5-FU [Concomitant]
     Active Substance: FLUOROURACIL
     Indication: CHEMOTHERAPY
     Dates: start: 20140722
  3. LEUCOVORIN [Concomitant]
     Active Substance: LEUCOVORIN
     Indication: CHEMOTHERAPY
     Dates: start: 20140722, end: 20140722
  4. AVASTIN [Concomitant]
     Active Substance: BEVACIZUMAB
     Indication: CHEMOTHERAPY
     Dates: start: 20140722, end: 20140722
  5. IRINOTECAN [Concomitant]
     Active Substance: IRINOTECAN
     Indication: CHEMOTHERAPY
     Dates: start: 20140722, end: 20140722

REACTIONS (1)
  - White blood cell count decreased [Not Recovered/Not Resolved]

NARRATIVE: CASE EVENT DATE: 20140805
